FAERS Safety Report 25763690 (Version 1)
Quarter: 2025Q3

REPORT INFORMATION
  Report Type: Spontaneous
  Country: US (occurrence: US)
  Receive Date: 20250905
  Receipt Date: 20250905
  Transmission Date: 20251021
  Serious: No
  Sender: DOMPE FARMACEUTICI
  Company Number: US-FARMAPROD-202410-3761

PATIENT
  Sex: Female

DRUGS (14)
  1. OXERVATE [Suspect]
     Active Substance: CENEGERMIN-BKBJ
     Indication: Neurotrophic keratopathy
     Route: 047
     Dates: start: 20241018
  2. ESTRADIOL [Concomitant]
     Active Substance: ESTRADIOL
  3. IBANDRONATE SODIUM [Concomitant]
     Active Substance: IBANDRONATE SODIUM
  4. LUTEIN [Concomitant]
     Active Substance: LUTEIN
  5. PROBIOTICS NOS [Concomitant]
     Active Substance: PROBIOTICS NOS
  6. CRANBERRY [Concomitant]
     Active Substance: CRANBERRY
  7. ASPIRIN [Concomitant]
     Active Substance: ASPIRIN
  8. RESTASIS [Concomitant]
     Active Substance: CYCLOSPORINE
  9. NIFEDIPINE [Concomitant]
     Active Substance: NIFEDIPINE
  10. LISINOPRIL AND HYDROCHLOROTHIAZIDE [Concomitant]
     Active Substance: HYDROCHLOROTHIAZIDE\LISINOPRIL
  11. RANOLAZINE [Concomitant]
     Active Substance: RANOLAZINE
  12. GABAPENTIN [Concomitant]
     Active Substance: GABAPENTIN
  13. PILOCARPINE HYDROCHLORIDE [Concomitant]
     Active Substance: PILOCARPINE HYDROCHLORIDE
  14. CEVIMELINE HYDROCHLORIDE [Concomitant]
     Active Substance: CEVIMELINE HYDROCHLORIDE

REACTIONS (1)
  - Product dose omission issue [Unknown]
